FAERS Safety Report 8064543-4 (Version None)
Quarter: 2012Q1

REPORT INFORMATION
  Report Type: 
  Country: None (occurrence: None)
  Receive Date: 20120123
  Receipt Date: 20120119
  Transmission Date: 20120608
  Serious: Yes (Hospitalization)
  Sender: FDA-Public Use
  Company Number: US-GILEAD-2012-0049127

PATIENT
  Sex: Female

DRUGS (16)
  1. LASIX [Concomitant]
  2. PROPRANOLOL [Concomitant]
  3. PREDNISONE [Concomitant]
  4. DIGOXIN [Concomitant]
  5. ALBUTEROL [Concomitant]
  6. FLEXERIL [Concomitant]
  7. OXYGEN [Concomitant]
  8. VITAMIN B-12 [Concomitant]
  9. LETAIRIS [Suspect]
     Indication: PULMONARY HYPERTENSION
     Dosage: 10 MG, UNK
     Route: 048
     Dates: start: 20080702
  10. TRAZODONE HCL [Concomitant]
  11. LEVOTHYROXINE SODIUM [Concomitant]
  12. POTASSIUM CHLORIDE [Concomitant]
  13. IRON [Concomitant]
  14. PRILOSEC                           /00661203/ [Concomitant]
  15. LORTAB [Concomitant]
  16. GENTEAL                            /00445101/ [Concomitant]

REACTIONS (6)
  - CARDIAC FAILURE CONGESTIVE [None]
  - FALL [None]
  - FLUID RETENTION [None]
  - VARICES OESOPHAGEAL [None]
  - HAEMATEMESIS [None]
  - GASTROENTERITIS VIRAL [None]
